FAERS Safety Report 7041049-2 (Version None)
Quarter: 2010Q4

REPORT INFORMATION
  Report Type: 
  Country: None (occurrence: None)
  Receive Date: 20101013
  Receipt Date: 20100930
  Transmission Date: 20110411
  Serious: Yes (Other)
  Sender: FDA-Public Use
  Company Number: CA-ELI_LILLY_AND_COMPANY-CA201008008159

PATIENT
  Sex: Male
  Weight: 81.633 kg

DRUGS (7)
  1. CYMBALTA [Suspect]
     Indication: BIPOLAR I DISORDER
     Dosage: 30 MG, DAILY (1/D)
     Route: 048
     Dates: start: 20090127, end: 20100817
  2. ZYPREXA [Suspect]
     Indication: BIPOLAR DISORDER
     Dosage: 20 MG, UNK
  3. SEROQUEL [Concomitant]
     Indication: ANXIETY
     Dosage: 25 MG, OTHER
  4. CHLOROQUINE PHOSPHATE [Concomitant]
     Indication: SYSTEMIC LUPUS ERYTHEMATOSUS
     Dosage: 250 MG, DAILY (1/D)
  5. REMERON [Concomitant]
     Indication: DEPRESSION
     Dosage: 30 MG, EACH EVENING
  6. TYLENOL (CAPLET) [Concomitant]
     Indication: HEADACHE
     Dosage: UNK, UNK
     Route: 048
  7. ALCOHOL [Concomitant]

REACTIONS (4)
  - ALANINE AMINOTRANSFERASE INCREASED [None]
  - ASPARTATE AMINOTRANSFERASE INCREASED [None]
  - BLOOD ALKALINE PHOSPHATASE INCREASED [None]
  - GAMMA-GLUTAMYLTRANSFERASE INCREASED [None]
